FAERS Safety Report 14675920 (Version 1)
Quarter: 2018Q1

REPORT INFORMATION
  Report Type: Spontaneous
  Country: US (occurrence: US)
  Receive Date: 20180323
  Receipt Date: 20180323
  Transmission Date: 20180509
  Serious: No
  Sender: FDA-Public Use
  Company Number: None

PATIENT
  Age: 81 Year
  Sex: Male
  Weight: 99 kg

DRUGS (14)
  1. TOVIAZ [Concomitant]
     Active Substance: FESOTERODINE FUMARATE
  2. ECOTRIN [Concomitant]
     Active Substance: ASPIRIN
  3. DICKOFENIC SODDIUM [Concomitant]
  4. VITAMIN B12 [Concomitant]
     Active Substance: CYANOCOBALAMIN
  5. HORIZANT [Suspect]
     Active Substance: GABAPENTIN ENACARBIL
     Indication: NEUROPATHY PERIPHERAL
     Dosage: ?          QUANTITY:1 TABLET(S);?
     Route: 048
     Dates: start: 20180321, end: 20180321
  6. HUMALOG [Concomitant]
     Active Substance: INSULIN LISPRO
  7. TAMSULOSIN [Concomitant]
     Active Substance: TAMSULOSIN
  8. CIALIS [Concomitant]
     Active Substance: TADALAFIL
  9. FUROSIMIDE [Concomitant]
     Active Substance: FUROSEMIDE
  10. CRESTOR [Concomitant]
     Active Substance: ROSUVASTATIN CALCIUM
  11. VITAMIN C [Concomitant]
     Active Substance: ASCORBIC ACID
  12. FERROUS SULFATE. [Concomitant]
     Active Substance: FERROUS SULFATE
  13. TROSPIOUM [Concomitant]
  14. CHLORIDE [Concomitant]
     Active Substance: CHLORIDE ION

REACTIONS (1)
  - Diarrhoea [None]

NARRATIVE: CASE EVENT DATE: 20180322
